FAERS Safety Report 6041919-8 (Version None)
Quarter: 2009Q1

REPORT INFORMATION
  Report Type: 
  Country: None (occurrence: None)
  Receive Date: 20090116
  Receipt Date: 20090107
  Transmission Date: 20090719
  Serious: Yes (Hospitalization)
  Sender: FDA-Public Use
  Company Number: CA-BAYER-200838333NA

PATIENT
  Sex: Female

DRUGS (1)
  1. NEXAVAR [Suspect]
     Indication: RENAL CANCER
     Route: 048
     Dates: start: 20081025, end: 20081102

REACTIONS (13)
  - ALOPECIA [None]
  - CHOKING [None]
  - DRY SKIN [None]
  - EYE SWELLING [None]
  - FATIGUE [None]
  - HYPERSENSITIVITY [None]
  - OEDEMA PERIPHERAL [None]
  - PAIN OF SKIN [None]
  - PLANTAR ERYTHEMA [None]
  - PRURITUS [None]
  - RASH [None]
  - RASH GENERALISED [None]
  - SWELLING FACE [None]
